FAERS Safety Report 24265209 (Version 1)
Quarter: 2024Q3

REPORT INFORMATION
  Report Type: Spontaneous
  Country: US (occurrence: None)
  Receive Date: 20240828
  Receipt Date: 20240828
  Transmission Date: 20241017
  Serious: Yes (Hospitalization)
  Sender: Public
  Company Number: None

PATIENT
  Sex: Female

DRUGS (8)
  1. SILDENAFIL CITRATE [Suspect]
     Active Substance: SILDENAFIL CITRATE
     Indication: Pulmonary arterial hypertension
     Dosage: FREQUENCY : 3 TIMES A DAY;?
     Route: 048
     Dates: start: 202011
  2. LIDOCAINE [Suspect]
     Active Substance: LIDOCAINE
  3. TRIAMCINOLONE [Suspect]
     Active Substance: TRIAMCINOLONE
  4. IODINE [Suspect]
     Active Substance: IODINE
  5. LECITHIN\POLOXAMER 407 [Concomitant]
     Active Substance: LECITHIN\POLOXAMER 407
  6. LIDOCAINE/PRILOCAINE CRM [Concomitant]
  7. EXCEDRIN [Concomitant]
     Active Substance: ACETAMINOPHEN\ASPIRIN\CAFFEINE
  8. REMODULIN [Concomitant]
     Active Substance: TREPROSTINIL

REACTIONS (7)
  - Pain [None]
  - Headache [None]
  - Dyspnoea [None]
  - Arterial disorder [None]
  - Swelling [None]
  - Tremor [None]
  - Septic shock [None]
